FAERS Safety Report 6891231-X (Version None)
Quarter: 2010Q3

REPORT INFORMATION
  Report Type: 
  Country: None (occurrence: None)
  Receive Date: 20100731
  Receipt Date: 20090630
  Transmission Date: 20110219
  Serious: Yes (Other)
  Sender: FDA-Public Use
  Company Number: US-PFIZER INC-2009219837

PATIENT

DRUGS (2)
  1. LIPITOR [Suspect]
     Indication: BLOOD CHOLESTEROL
     Dosage: 10 MG, UNK
     Dates: start: 20040601, end: 20041201
  2. RED YEAST RICE [Suspect]
     Indication: BLOOD CHOLESTEROL

REACTIONS (1)
  - ALANINE AMINOTRANSFERASE INCREASED [None]
